FAERS Safety Report 9587315 (Version 2)
Quarter: 2013Q4

REPORT INFORMATION
  Report Type: Spontaneous
  Country: US (occurrence: US)
  Receive Date: 20131003
  Receipt Date: 20131104
  Transmission Date: 20140711
  Serious: Yes (Other)
  Sender: FDA-Public Use
  Company Number: US-PFIZER INC-2013278847

PATIENT
  Age: 60 Year
  Sex: Female
  Weight: 36.28 kg

DRUGS (1)
  1. ADVIL [Suspect]
     Indication: HEADACHE
     Dosage: 1 DF, AS NEEDED
     Route: 048
     Dates: start: 1998

REACTIONS (1)
  - Parkinson^s disease [Unknown]
